FAERS Safety Report 8830869 (Version 2)
Quarter: 2013Q4

REPORT INFORMATION
  Report Type: Spontaneous
  Country: US (occurrence: US)
  Receive Date: 20121009
  Receipt Date: 20131224
  Transmission Date: 20140711
  Serious: Yes (Hospitalization)
  Sender: FDA-Public Use
  Company Number: US-RANBAXY-2012US-60708

PATIENT
  Age: 59 Year
  Sex: Female

DRUGS (15)
  1. LORAZEPAM [Suspect]
     Indication: ANXIETY
     Dosage: 1 MG, PRN
     Route: 065
  2. LORAZEPAM [Suspect]
     Indication: DEPRESSION
  3. LORAZEPAM [Suspect]
     Indication: ANXIETY
     Dosage: 2 MG/DAY AT BED TIME
     Route: 065
  4. LORAZEPAM [Suspect]
     Indication: DEPRESSION
  5. CITALOPRAM [Concomitant]
     Indication: ANXIETY
     Dosage: 40 MG/DAY
     Route: 065
  6. CITALOPRAM [Concomitant]
     Indication: DEPRESSION
  7. IMIPRAMINE [Concomitant]
     Indication: ANXIETY
     Dosage: 150 MG, QD AT BED TIME
     Route: 065
  8. IMIPRAMINE [Concomitant]
     Indication: DEPRESSION
  9. TRIFLUOPERAZINE [Concomitant]
     Indication: ANXIETY
     Dosage: 5 MG/DAY
     Route: 065
  10. TRIFLUOPERAZINE [Concomitant]
     Indication: DEPRESSION
  11. DIGOXIN [Concomitant]
     Indication: PRODUCT USED FOR UNKNOWN INDICATION
     Dosage: 62.5 MCG/DAY
     Route: 065
  12. FUROSEMIDE [Concomitant]
     Indication: PRODUCT USED FOR UNKNOWN INDICATION
     Dosage: 240 MG/DAY
     Route: 065
  13. METFORMIN [Concomitant]
     Indication: PRODUCT USED FOR UNKNOWN INDICATION
     Dosage: 1000 MG/DAY
     Route: 065
  14. POTASSIUM CHLORIDE [Concomitant]
     Indication: PRODUCT USED FOR UNKNOWN INDICATION
     Dosage: 80 MEQ/DAY
     Route: 065
  15. NIACIN [Concomitant]
     Indication: PRODUCT USED FOR UNKNOWN INDICATION
     Dosage: 100 MG/DAY
     Route: 065

REACTIONS (1)
  - Catatonia [Recovered/Resolved]
